FAERS Safety Report 6292288-X (Version None)
Quarter: 2009Q3

REPORT INFORMATION
  Report Type: 
  Country: None (occurrence: None)
  Receive Date: 20090731
  Receipt Date: 20090723
  Transmission Date: 20100115
  Serious: Yes (Hospitalization)
  Sender: FDA-Public Use
  Company Number: US-ABBOTT-09P-163-0587165-00

PATIENT
  Sex: Female
  Weight: 81.266 kg

DRUGS (18)
  1. HUMIRA [Suspect]
     Indication: CROHN'S DISEASE
     Dates: start: 20080101
  2. HUMIRA [Suspect]
  3. PENTASA [Concomitant]
     Indication: CROHN'S DISEASE
  4. PHENERGAN [Concomitant]
     Indication: VOMITING
  5. VALIUM [Concomitant]
     Indication: CONVULSION
  6. MIRAPEX [Concomitant]
     Indication: RESTLESS LEGS SYNDROME
  7. ROZERM [Concomitant]
     Indication: SLEEP DISORDER
  8. TIZANIDINE HCL [Concomitant]
     Indication: MUSCLE RELAXANT THERAPY
  9. MIDRIN [Concomitant]
     Indication: MIGRAINE
  10. OXYCODONE [Concomitant]
     Indication: PAIN
  11. RANITIDINE [Concomitant]
     Indication: GASTROOESOPHAGEAL REFLUX DISEASE
  12. MAG OX [Concomitant]
     Indication: ELECTROLYTE SUBSTITUTION THERAPY
  13. LASIX [Concomitant]
     Indication: FLUID RETENTION
  14. SYNTHROID [Concomitant]
     Indication: HYPOTHYROIDISM
  15. KLOR-CON [Concomitant]
     Indication: ELECTROLYTE SUBSTITUTION THERAPY
  16. LOMOTIL [Concomitant]
     Indication: DIARRHOEA
  17. BENTYL [Concomitant]
     Indication: ABDOMINAL PAIN UPPER
  18. SAVELLA [Concomitant]
     Indication: FIBROMYALGIA

REACTIONS (8)
  - DEHYDRATION [None]
  - DIARRHOEA [None]
  - DRUG DOSE OMISSION [None]
  - HEPATIC ENZYME INCREASED [None]
  - HYPOPHAGIA [None]
  - NASOPHARYNGITIS [None]
  - PYREXIA [None]
  - VOMITING [None]
